FAERS Safety Report 6033131-3 (Version None)
Quarter: 2009Q1

REPORT INFORMATION
  Report Type: 
  Country: None (occurrence: None)
  Receive Date: 20090109
  Receipt Date: 20081231
  Transmission Date: 20090719
  Serious: Yes (Other)
  Sender: FDA-Public Use
  Company Number: US-CELGENEUS-163-21880-09010012

PATIENT
  Sex: Female
  Weight: 80.4 kg

DRUGS (3)
  1. REVLIMID [Suspect]
     Route: 048
     Dates: start: 20080915, end: 20081126
  2. RED BLOOD CELLS [Concomitant]
     Indication: DRUG USE FOR UNKNOWN INDICATION
     Dosage: 2 UNITS
     Route: 051
     Dates: start: 20081201, end: 20081201
  3. PLATELETS [Concomitant]
     Indication: DRUG USE FOR UNKNOWN INDICATION
     Dosage: 1 UNIT
     Route: 051
     Dates: start: 20080101, end: 20080101

REACTIONS (1)
  - ANAEMIA HAEMOLYTIC AUTOIMMUNE [None]
